FAERS Safety Report 12890319 (Version 4)
Quarter: 2017Q1

REPORT INFORMATION
  Report Type: Report from Study
  Country: US (occurrence: US)
  Receive Date: 20161027
  Receipt Date: 20170330
  Transmission Date: 20170428
  Serious: Yes (Other)
  Sender: FDA-Public Use
  Company Number: US-MALLINCKRODT-T201605299

PATIENT
  Sex: Male

DRUGS (2)
  1. REPOSITORY CORTICOTROPIN INJECTION [Suspect]
     Active Substance: CORTICOTROPIN
     Indication: NEPHROTIC SYNDROME
     Dosage: 20 UNITS / .25 ML; TWICE WEEKLY
     Route: 058
     Dates: start: 2016, end: 20161203
  2. REPOSITORY CORTICOTROPIN INJECTION [Suspect]
     Active Substance: CORTICOTROPIN
     Indication: PROTEINURIA
     Dosage: 30U/0.375ML, TWICE PER WEEK
     Route: 058
     Dates: start: 20160404

REACTIONS (3)
  - Blood glucose abnormal [Unknown]
  - Renal impairment [Not Recovered/Not Resolved]
  - Glomerular filtration rate abnormal [Unknown]
